FAERS Safety Report 5935909-0 (Version None)
Quarter: 2008Q4

REPORT INFORMATION
  Report Type: 
  Country: None (occurrence: None)
  Receive Date: 20081030
  Receipt Date: 20080408
  Transmission Date: 20090506
  Serious: No
  Sender: FDA-Public Use
  Company Number: A0721637A

PATIENT
  Sex: Female

DRUGS (2)
  1. IMITREX [Suspect]
  2. ORAL CONTRACEPTIVE [Concomitant]

REACTIONS (1)
  - URTICARIA [None]
